FAERS Safety Report 7887480 (Version 3)
Quarter: 2014Q2

REPORT INFORMATION
  Report Type: Spontaneous
  Country: FR (occurrence: FR)
  Receive Date: 20110406
  Receipt Date: 20140430
  Transmission Date: 20141212
  Serious: Yes (Hospitalization)
  Sender: FDA-Public Use
  Company Number: FR-ASTRAZENECA-2011SE18006

PATIENT
  Age: 11203 Day
  Sex: Female

DRUGS (26)
  1. MERONEM [Suspect]
     Route: 042
     Dates: start: 20110207, end: 20110213
  2. PROGRAF [Suspect]
     Route: 048
     Dates: start: 20110205, end: 20110206
  3. PROGRAF [Suspect]
     Route: 048
     Dates: start: 20110214
  4. INEXIUM [Concomitant]
     Route: 048
     Dates: start: 20110205, end: 20110214
  5. RAMIPRIL [Concomitant]
     Dates: start: 20110204
  6. ATENOLOL [Concomitant]
     Dates: start: 20110204
  7. CORTANCYL [Concomitant]
     Dates: start: 20110214
  8. CELLCEPT [Concomitant]
     Dates: start: 20110205
  9. EXFORGE [Concomitant]
     Dosage: 1 DF DAILY (AMLODIPINE 5 MG+VALSARTAN 160 MG)
     Dates: start: 20110204
  10. EUPRESSYL [Concomitant]
     Dates: start: 20110204
  11. LASILIX [Concomitant]
     Dates: start: 20110209, end: 20110211
  12. ROVALCYTE [Concomitant]
     Dates: start: 20110205
  13. KAYEXALATE [Concomitant]
     Dates: start: 20110204
  14. KEPPRA [Concomitant]
  15. CREON [Concomitant]
  16. TERCIAN [Concomitant]
  17. DEROXAT [Concomitant]
  18. CALCIDIA [Concomitant]
  19. LEVEMIR [Concomitant]
  20. NOVORAPID [Concomitant]
  21. HYPNOVEL [Concomitant]
     Dates: start: 20110204, end: 20110208
  22. SUFENTA [Concomitant]
     Dates: start: 20110204, end: 20110208
  23. TAZOCILLINE [Concomitant]
     Dates: start: 20110204, end: 20110206
  24. HEMISUCCINATE D^HYDROCORTISON [Concomitant]
     Dates: start: 20110204, end: 20110214
  25. HUMALOG [Concomitant]
     Dates: start: 20110204
  26. LOVENOX [Concomitant]
     Dates: start: 20110205

REACTIONS (1)
  - Cholestasis [Recovered/Resolved with Sequelae]
